FAERS Safety Report 24844235 (Version 2)
Quarter: 2025Q1

REPORT INFORMATION
  Report Type: Spontaneous
  Country: US (occurrence: US)
  Receive Date: 20250115
  Receipt Date: 20250313
  Transmission Date: 20250408
  Serious: No
  Sender: SANOFI AVENTIS
  Company Number: US-SA-2025SA010974

PATIENT
  Age: 57 Year
  Sex: Female

DRUGS (4)
  1. DUPIXENT [Suspect]
     Active Substance: DUPILUMAB
     Indication: Dermatitis atopic
     Dosage: 300 MG, QOW
     Route: 058
     Dates: start: 20240507
  2. FEBUXOSTAT [Concomitant]
     Active Substance: FEBUXOSTAT
  3. FUROSEMIDE [Concomitant]
     Active Substance: FUROSEMIDE
  4. SEVELAMER [Concomitant]
     Active Substance: SEVELAMER

REACTIONS (4)
  - Sleep disorder due to a general medical condition [Unknown]
  - Discomfort [Unknown]
  - Vision blurred [Not Recovered/Not Resolved]
  - Rash [Unknown]

NARRATIVE: CASE EVENT DATE: 20250306
